FAERS Safety Report 14160975 (Version 1)
Quarter: 2017Q4

REPORT INFORMATION
  Report Type: Spontaneous
  Country: US (occurrence: US)
  Receive Date: 20171106
  Receipt Date: 20171106
  Transmission Date: 20180321
  Serious: Yes (Other)
  Sender: FDA-Public Use
  Company Number: US-SA-2017SA215227

PATIENT
  Sex: Male

DRUGS (2)
  1. ALIROCUMAB PREFILLED PEN [Suspect]
     Active Substance: ALIROCUMAB
  2. PRALUENT [Suspect]
     Active Substance: ALIROCUMAB
     Route: 058

REACTIONS (1)
  - Pancreatitis [Unknown]
